FAERS Safety Report 6625663-1 (Version None)
Quarter: 2010Q1

REPORT INFORMATION
  Report Type: 
  Country: None (occurrence: None)
  Receive Date: 20100310
  Receipt Date: 20100226
  Transmission Date: 20100710
  Serious: Yes (Other)
  Sender: FDA-Public Use
  Company Number: JP-ROCHE-689107

PATIENT
  Sex: Male
  Weight: 57 kg

DRUGS (11)
  1. TOCILIZUMAB [Suspect]
     Indication: RHEUMATOID ARTHRITIS
     Route: 041
     Dates: start: 20080723, end: 20080723
  2. TOCILIZUMAB [Suspect]
     Route: 041
     Dates: start: 20080819, end: 20080819
  3. TOCILIZUMAB [Suspect]
     Route: 041
     Dates: start: 20080916, end: 20080916
  4. TOCILIZUMAB [Suspect]
     Route: 041
     Dates: start: 20081014, end: 20081014
  5. TOCILIZUMAB [Suspect]
     Route: 041
     Dates: start: 20081113, end: 20081113
  6. TOCILIZUMAB [Suspect]
     Route: 041
     Dates: start: 20081215, end: 20081215
  7. RHEUMATREX [Concomitant]
     Route: 048
  8. PREDONINE [Concomitant]
     Route: 048
  9. CONSTAN [Concomitant]
     Route: 048
  10. TAKEPRON [Concomitant]
     Dosage: FORM: PERORAL AGENT
     Route: 048
  11. TRICOR [Concomitant]
     Route: 048

REACTIONS (1)
  - COLITIS ULCERATIVE [None]
